FAERS Safety Report 10931774 (Version 1)
Quarter: 2015Q1

REPORT INFORMATION
  Report Type: Report from Study
  Country: US (occurrence: US)
  Receive Date: 20150319
  Receipt Date: 20150319
  Transmission Date: 20150721
  Serious: Yes (Other)
  Sender: FDA-Public Use
  Company Number: PHHY2015US026864

PATIENT
  Age: 40 Year
  Sex: Male
  Weight: 144.76 kg

DRUGS (15)
  1. MELOXICAM. [Concomitant]
     Active Substance: MELOXICAM
     Indication: PRODUCT USED FOR UNKNOWN INDICATION
     Route: 065
  2. GILENYA [Suspect]
     Active Substance: FINGOLIMOD HYDROCHLORIDE
     Indication: MULTIPLE SCLEROSIS
     Dosage: 0.5 MG, QD
     Route: 048
     Dates: start: 20140617
  3. CARBAMAZEPINE. [Concomitant]
     Active Substance: CARBAMAZEPINE
     Indication: PRODUCT USED FOR UNKNOWN INDICATION
     Route: 065
  4. AMANTADINE [Concomitant]
     Active Substance: AMANTADINE
     Indication: PRODUCT USED FOR UNKNOWN INDICATION
     Route: 065
  5. GABAPENTIN. [Concomitant]
     Active Substance: GABAPENTIN
     Indication: PRODUCT USED FOR UNKNOWN INDICATION
     Route: 065
  6. PRAVASTATIN [Concomitant]
     Active Substance: PRAVASTATIN\PRAVASTATIN SODIUM
     Indication: PRODUCT USED FOR UNKNOWN INDICATION
     Route: 065
  7. VITAMIN D3 [Concomitant]
     Active Substance: CHOLECALCIFEROL
     Indication: PRODUCT USED FOR UNKNOWN INDICATION
     Route: 065
  8. DIAZEPAM. [Concomitant]
     Active Substance: DIAZEPAM
     Indication: PRODUCT USED FOR UNKNOWN INDICATION
     Route: 065
  9. ONDANSETRON [Concomitant]
     Active Substance: ONDANSETRON
     Indication: PRODUCT USED FOR UNKNOWN INDICATION
     Route: 065
  10. TIZANIDINE (TIZANIDINE) [Concomitant]
     Active Substance: TIZANIDINE
     Indication: PRODUCT USED FOR UNKNOWN INDICATION
     Route: 065
  11. ELIQUIS [Concomitant]
     Active Substance: APIXABAN
     Indication: PRODUCT USED FOR UNKNOWN INDICATION
     Route: 065
  12. PROPRANOLOL [Concomitant]
     Active Substance: PROPRANOLOL\PROPRANOLOL HYDROCHLORIDE
     Indication: PRODUCT USED FOR UNKNOWN INDICATION
     Route: 065
  13. VITAMIN B12 [Concomitant]
     Active Substance: CYANOCOBALAMIN
     Indication: PRODUCT USED FOR UNKNOWN INDICATION
     Route: 065
  14. OXYCODONE-ACET [Concomitant]
     Indication: PRODUCT USED FOR UNKNOWN INDICATION
     Route: 065
  15. VITAMIN B9 [Concomitant]
     Indication: PRODUCT USED FOR UNKNOWN INDICATION
     Route: 065

REACTIONS (42)
  - Sensory loss [Unknown]
  - Spinal compression fracture [Unknown]
  - Psychotic disorder [Not Recovered/Not Resolved]
  - Pleuritic pain [Recovered/Resolved]
  - Mania [Unknown]
  - Peripheral coldness [Unknown]
  - Nystagmus [Unknown]
  - Visual impairment [Unknown]
  - Night blindness [Unknown]
  - Pleurisy [Unknown]
  - Neuralgia [Not Recovered/Not Resolved]
  - Macrocytosis [Unknown]
  - Cerebral disorder [Unknown]
  - Tandem gait test abnormal [Unknown]
  - Middle insomnia [Unknown]
  - Pulmonary embolism [Unknown]
  - Musculoskeletal pain [Recovered/Resolved]
  - Nausea [Unknown]
  - Depression [Not Recovered/Not Resolved]
  - Reflexes abnormal [Unknown]
  - Sensory disturbance [Unknown]
  - Fatigue [Unknown]
  - Blindness [Not Recovered/Not Resolved]
  - Thermal burn [Unknown]
  - Vitamin B12 decreased [Unknown]
  - Muscle spasms [Recovered/Resolved]
  - Gait disturbance [Unknown]
  - Neuropathy peripheral [Unknown]
  - Temporomandibular joint syndrome [Unknown]
  - Stress [Unknown]
  - Irritability [Unknown]
  - Blood triglycerides increased [Unknown]
  - Weight decreased [Not Recovered/Not Resolved]
  - Multiple sclerosis relapse [Unknown]
  - Areflexia [Unknown]
  - Muscle spasticity [Not Recovered/Not Resolved]
  - Headache [Unknown]
  - Migraine [Unknown]
  - Anxiety [Not Recovered/Not Resolved]
  - Tunnel vision [Unknown]
  - Hypochromasia [Unknown]
  - Hypertension [Unknown]

NARRATIVE: CASE EVENT DATE: 201409
